FAERS Safety Report 24599424 (Version 2)
Quarter: 2025Q3

REPORT INFORMATION
  Report Type: Spontaneous
  Country: US (occurrence: US)
  Receive Date: 20241110
  Receipt Date: 20250829
  Transmission Date: 20251020
  Serious: No
  Sender: SANOFI AVENTIS
  Company Number: US-SA-2024SA318375

PATIENT
  Age: 66 Year
  Sex: Male

DRUGS (20)
  1. DUPIXENT [Suspect]
     Active Substance: DUPILUMAB
     Indication: Asthma
     Dosage: 300 MG, QOW
     Route: 058
  2. PAROXETINE [Concomitant]
     Active Substance: PAROXETINE
  3. GABAPENTIN [Concomitant]
     Active Substance: GABAPENTIN
  4. PROZAC [Concomitant]
     Active Substance: FLUOXETINE HYDROCHLORIDE
  5. PRAVASTATIN [Concomitant]
     Active Substance: PRAVASTATIN
  6. FAMOTIDINE [Concomitant]
     Active Substance: FAMOTIDINE
  7. NALOXONE [Concomitant]
     Active Substance: NALOXONE
  8. ATROVENT [Concomitant]
     Active Substance: IPRATROPIUM BROMIDE
  9. PREDNISONE [Concomitant]
     Active Substance: PREDNISONE
  10. VITAMIN D [Concomitant]
     Active Substance: VITAMIN D NOS
  11. FLUOXETINE [Concomitant]
     Active Substance: FLUOXETINE HYDROCHLORIDE
  12. CARVEDILOL [Concomitant]
     Active Substance: CARVEDILOL
  13. MORPHINE [Concomitant]
     Active Substance: MORPHINE
  14. VALSARTAN [Concomitant]
     Active Substance: VALSARTAN
  15. LANTUS SOLOSTAR [Concomitant]
     Active Substance: INSULIN GLARGINE
  16. CLONIDINE [Concomitant]
     Active Substance: CLONIDINE
  17. HYDROCODONE [Concomitant]
     Active Substance: HYDROCODONE
  18. AMLODIPINE [Concomitant]
     Active Substance: AMLODIPINE BESYLATE
  19. JARDIANCE [Concomitant]
     Active Substance: EMPAGLIFLOZIN
  20. MINOXIDIL [Concomitant]
     Active Substance: MINOXIDIL

REACTIONS (2)
  - Cardiac disorder [Unknown]
  - Asthma [Unknown]

NARRATIVE: CASE EVENT DATE: 20241001
